FAERS Safety Report 9821577 (Version 2)
Quarter: 2014Q1

REPORT INFORMATION
  Report Type: Spontaneous
  Country: US (occurrence: US)
  Receive Date: 20140116
  Receipt Date: 20140227
  Transmission Date: 20141002
  Serious: No
  Sender: FDA-Public Use
  Company Number: US-PFIZER INC-2014009781

PATIENT
  Age: 83 Year
  Sex: Female
  Weight: 63.04 kg

DRUGS (9)
  1. ADVIL PM [Suspect]
     Indication: INSOMNIA
     Dosage: (IBUPROFEN 200 MG/ DIPHENHYDRAMINE 25 MG), DAILY
     Route: 048
     Dates: start: 201401
  2. SHOPRITE MULTIVITAMIN FOR WOMEN 50+ [Concomitant]
     Indication: SUPPLEMENTATION THERAPY
     Dosage: UNK
  3. AMLODIPINE [Concomitant]
     Indication: BLOOD PRESSURE ABNORMAL
     Dosage: 5 MG, DAILY
  4. LOSARTAN POTASSIUM W/HYDROCHLOROTHIAZIDE [Concomitant]
     Indication: BLOOD PRESSURE ABNORMAL
     Dosage: (HYDROCHLOROTHIAZIDE 25MG/ LOSARTAN POTASSIUM  100MG), DAILY
     Route: 048
  5. FISH OIL [Concomitant]
     Indication: SUPPLEMENTATION THERAPY
     Dosage: 1000 MG, DAILY
  6. CALCIUM [Concomitant]
     Indication: SUPPLEMENTATION THERAPY
     Dosage: UNK, DAILY
  7. VITAMIN D3 [Concomitant]
     Indication: SUPPLEMENTATION THERAPY
     Dosage: UNK, DAILY
  8. PRAVASTATIN SODIUM [Concomitant]
     Indication: BLOOD CHOLESTEROL ABNORMAL
     Dosage: 40 MG, DAILY
  9. METFORMIN [Concomitant]
     Indication: DIABETES MELLITUS
     Dosage: 500 MG, TWO TIMES A DAY

REACTIONS (1)
  - Drug ineffective [Unknown]
